FAERS Safety Report 8244501-7 (Version None)
Quarter: 2012Q1

REPORT INFORMATION
  Report Type: 
  Country: None (occurrence: None)
  Receive Date: 20120329
  Receipt Date: 20120323
  Transmission Date: 20120608
  Serious: Yes (Hospitalization)
  Sender: FDA-Public Use
  Company Number: CHPA2012US001281

PATIENT
  Age: 40 Year
  Sex: Female

DRUGS (2)
  1. MULTI-VITAMINS [Concomitant]
  2. EXCEDRIN TENSION HEADACHE CAPLETS [Suspect]
     Indication: HEADACHE
     Dosage: 2 DF, PRN
     Route: 048
     Dates: start: 20000101, end: 20120101

REACTIONS (2)
  - UTERINE LEIOMYOMA [None]
  - HEADACHE [None]
